FAERS Safety Report 19096322 (Version 1)
Quarter: 2021Q2

REPORT INFORMATION
  Report Type: Spontaneous
  Country: US (occurrence: US)
  Receive Date: 20210405
  Receipt Date: 20210405
  Transmission Date: 20210717
  Serious: No
  Sender: FDA-Public Use
  Company Number: None

PATIENT
  Age: 58 Year
  Sex: Male

DRUGS (8)
  1. ATORVASTATIN [Concomitant]
     Active Substance: ATORVASTATIN
  2. HUMULIN NOS [Concomitant]
     Active Substance: INSULIN HUMAN
  3. NIFEDIPINE. [Concomitant]
     Active Substance: NIFEDIPINE
  4. TACROLIMUS. [Concomitant]
     Active Substance: TACROLIMUS
  5. ZORTRESS [Suspect]
     Active Substance: EVEROLIMUS
     Indication: RENAL TRANSPLANT
     Route: 048
     Dates: start: 20200316, end: 20210402
  6. PREDNISONE. [Concomitant]
     Active Substance: PREDNISONE
  7. MAGNESIUM [Concomitant]
     Active Substance: MAGNESIUM
  8. PRILOSEC [Concomitant]
     Active Substance: OMEPRAZOLE MAGNESIUM

REACTIONS (2)
  - Therapy cessation [None]
  - Oedema peripheral [None]

NARRATIVE: CASE EVENT DATE: 20210212
